FAERS Safety Report 8766530 (Version 2)
Quarter: 2012Q4

REPORT INFORMATION
  Report Type: 
  Country: JP (occurrence: JP)
  Receive Date: 20120905
  Receipt Date: 20121002
  Transmission Date: 20130627
  Serious: Yes (Other)
  Sender: FDA-Public Use
  Company Number: JP-TEVA-356909ISR

PATIENT
  Age: 25 Year
  Sex: Female
  Weight: 45 kg

DRUGS (4)
  1. MODIODAL [Suspect]
     Indication: NARCOLEPSY
     Dosage: 200 Milligram Daily;
     Route: 048
     Dates: start: 20120712, end: 20120723
  2. MODIODAL [Suspect]
     Dosage: 100 Milligram Daily;
     Route: 048
     Dates: start: 20120724
  3. TETRAMIDE [Concomitant]
     Indication: SLEEP DISORDER
     Dosage: 10 Milligram Daily;
     Route: 048
     Dates: start: 20120706
  4. ROZEREM [Concomitant]
     Indication: SLEEP DISORDER
     Dosage: 8 Milligram Daily;
     Route: 048
     Dates: start: 20120706

REACTIONS (1)
  - Illusion [Recovered/Resolved]
